FAERS Safety Report 7434053-3 (Version None)
Quarter: 2011Q2

REPORT INFORMATION
  Report Type: 
  Country: None (occurrence: None)
  Receive Date: 20110425
  Receipt Date: 20110420
  Transmission Date: 20111010
  Serious: Yes (Hospitalization, Other)
  Sender: FDA-Public Use
  Company Number: US-AMGEN-USASP2011017674

PATIENT
  Age: 54 Year
  Sex: Female
  Weight: 136 kg

DRUGS (3)
  1. CORTICOSTEROIDS [Concomitant]
  2. NPLATE [Suspect]
     Indication: IDIOPATHIC THROMBOCYTOPENIC PURPURA
     Dosage: 1 A?G/KG, QWK
     Route: 058
     Dates: start: 20100308, end: 20100405
  3. SOLU-MEDROL [Concomitant]
     Dosage: UNK
     Dates: start: 20100222, end: 20100307

REACTIONS (2)
  - DRUG INEFFECTIVE [None]
  - BIOPSY BONE MARROW ABNORMAL [None]
